FAERS Safety Report 4384063-8 (Version None)
Quarter: 2004Q2

REPORT INFORMATION
  Report Type: 
  Country: None (occurrence: None)
  Receive Date: 20040621
  Receipt Date: 20040609
  Transmission Date: 20050107
  Serious: Yes (Death, Hospitalization)
  Sender: FDA-Public Use
  Company Number: FR-2004-027011

PATIENT
  Age: 92 Year
  Sex: Female

DRUGS (3)
  1. SOTALOL HCL [Suspect]
     Dosage: 40 MG/D, ORAL
     Route: 048
  2. RISPERDAL [Suspect]
     Dosage: 1 TAB(S) PER DAY, ORAL
     Route: 048
  3. REMINYL [Suspect]
     Dosage: 16 MG/D, ORAL
     Route: 048
     Dates: start: 20030324, end: 20030604

REACTIONS (4)
  - BRADYCARDIA [None]
  - CEREBROVASCULAR ACCIDENT [None]
  - COMA [None]
  - HYPONATRAEMIA [None]
